FAERS Safety Report 9007118 (Version 3)
Quarter: 2013Q3

REPORT INFORMATION
  Report Type: Spontaneous
  Country: US (occurrence: US)
  Receive Date: 20130110
  Receipt Date: 20130911
  Transmission Date: 20140515
  Serious: Yes (Hospitalization)
  Sender: FDA-Public Use
  Company Number: US-BAYER-2013-002645

PATIENT
  Age: 20 Year
  Sex: Female
  Weight: 58.96 kg

DRUGS (15)
  1. YAZ [Suspect]
     Indication: ACNE
     Dosage: UNK
     Dates: start: 200911, end: 20110101
  2. YAZ [Suspect]
     Indication: MENSTRUAL CYCLE MANAGEMENT
  3. YAZ [Suspect]
     Indication: CONTRACEPTION
  4. GIANVI [Suspect]
  5. CLINDAMYCIN [Concomitant]
     Indication: ACNE
     Dosage: 300 MG, 1 BID
     Route: 048
     Dates: start: 20101017
  6. PROMETHAZINE [Concomitant]
     Indication: PROPHYLAXIS OF NAUSEA AND VOMITING
     Dosage: 25 MG, 1 EVERY 6-8 HOURS PRN
     Route: 048
     Dates: start: 20101214
  7. HYDROCODONE W/ACETAMINOPHEN [Concomitant]
     Indication: PAIN
     Dosage: 7.5MG/500MG, 1-2 TABLETS EVERY 4-6 HOURS AS NEEDED
     Route: 048
     Dates: start: 20101214, end: 20101218
  8. BENZOYL PEROXIDE [Concomitant]
     Dosage: UNK
     Route: 061
     Dates: start: 20110110
  9. DEXAMETHASONE W/NEOMYCIN,POLYMYXIN B [Concomitant]
     Dosage: 1 DROP IN BOTH EYES FOUR TIMES A DAY FOR 6 DAYS
     Dates: start: 20101117
  10. DEXAMETHASONE W/NEOMYCIN,POLYMYXIN B [Concomitant]
     Dosage: 1 DROP IN BOTH EYES FOUR TIMES A DAY FOR 6 DAYS
     Route: 047
     Dates: start: 20101117
  11. DEXAMETHASONE W/NEOMYCIN,POLYMYXIN B [Concomitant]
     Dosage: 1 DROP IN BOTH EYES FOUR TIMES A DAY FOR 6 DAYS
     Route: 047
     Dates: start: 20101117
  12. NORCO [Concomitant]
  13. LORTAB [Concomitant]
     Indication: PAIN
  14. MINOCYCLINE [Concomitant]
     Indication: ACNE
     Dosage: UNK
     Dates: start: 2010, end: 2011
  15. RETIN-A MICRO [Concomitant]
     Indication: ACNE
     Dosage: UNK
     Dates: start: 2011

REACTIONS (3)
  - Deep vein thrombosis [None]
  - Injury [None]
  - Pain [None]
